FAERS Safety Report 13814749 (Version 1)
Quarter: 2017Q3

REPORT INFORMATION
  Report Type: Spontaneous
  Country: US (occurrence: US)
  Receive Date: 20170731
  Receipt Date: 20170731
  Transmission Date: 20171127
  Serious: No
  Sender: FDA-Public Use
  Company Number: None

PATIENT
  Age: 72 Year
  Sex: Female
  Weight: 81.72 kg

DRUGS (10)
  1. CHLORTHALIDONE. [Concomitant]
     Active Substance: CHLORTHALIDONE
  2. LEVOTHYROXIN SODIUM [Concomitant]
     Active Substance: LEVOTHYROXINE SODIUM
  3. ALLOPURINOL. [Concomitant]
     Active Substance: ALLOPURINOL
  4. D [Concomitant]
  5. LIVALO [Suspect]
     Active Substance: PITAVASTATIN CALCIUM
     Indication: BLOOD CHOLESTEROL INCREASED
     Dosage: AT BEDTIME
     Route: 048
     Dates: start: 20170521, end: 20170523
  6. VALSARTAN. [Concomitant]
     Active Substance: VALSARTAN
  7. WARFARIN [Concomitant]
     Active Substance: WARFARIN
  8. COQ10 [Concomitant]
     Active Substance: UBIDECARENONE
  9. DILTIAZEM. [Concomitant]
     Active Substance: DILTIAZEM
  10. VIT B3 [Concomitant]

REACTIONS (6)
  - Painful respiration [None]
  - Arthralgia [None]
  - Musculoskeletal pain [None]
  - Asthenia [None]
  - Back pain [None]
  - Chest pain [None]

NARRATIVE: CASE EVENT DATE: 20170521
